FAERS Safety Report 5622469-7 (Version None)
Quarter: 2008Q1

REPORT INFORMATION
  Report Type: 
  Country: None (occurrence: None)
  Receive Date: 20080211
  Receipt Date: 20080130
  Transmission Date: 20080703
  Serious: Yes (Other)
  Sender: FDA-Public Use
  Company Number: US-PFIZER INC-2008010126

PATIENT
  Sex: Female
  Weight: 102.1 kg

DRUGS (8)
  1. CHANTIX [Suspect]
     Indication: SMOKING CESSATION THERAPY
     Dates: start: 20080105, end: 20080130
  2. PLAVIX [Concomitant]
  3. ASPIRIN [Concomitant]
  4. VALSARTAN [Concomitant]
  5. COREG [Concomitant]
  6. PREVACID [Concomitant]
  7. LASIX [Concomitant]
  8. FENOFIBRATE [Concomitant]

REACTIONS (11)
  - AGITATION [None]
  - ANGER [None]
  - BONE DISORDER [None]
  - DEPRESSION [None]
  - DISCOMFORT [None]
  - DYSGEUSIA [None]
  - FOOD AVERSION [None]
  - GAIT DISTURBANCE [None]
  - IRRITABILITY [None]
  - NAUSEA [None]
  - PAROSMIA [None]
